FAERS Safety Report 21132646 (Version 1)
Quarter: 2022Q3

REPORT INFORMATION
  Report Type: Spontaneous
  Country: MX (occurrence: MX)
  Receive Date: 20220726
  Receipt Date: 20220726
  Transmission Date: 20221027
  Serious: Yes (Hospitalization, Other)
  Sender: FDA-Public Use
  Company Number: MX-UCBSA-2022041614

PATIENT
  Sex: Male

DRUGS (5)
  1. ROTIGOTINE [Suspect]
     Active Substance: ROTIGOTINE
     Indication: Parkinson^s disease
     Dosage: HALF OF 4 MG A DAY
  2. ROTIGOTINE [Suspect]
     Active Substance: ROTIGOTINE
     Dosage: 8 MILLIGRAM, ONCE DAILY (QD)
  3. RASAGILINE [Concomitant]
     Active Substance: RASAGILINE
     Indication: Parkinson^s disease
     Dosage: 1 MILLIGRAM, ONCE DAILY (QD)
  4. CARBIDOPA\LEVODOPA [Concomitant]
     Active Substance: CARBIDOPA\LEVODOPA
     Indication: Parkinson^s disease
     Dosage: 0.25 MILLIGRAM, 3X/DAY (TID)
  5. CARBIDOPA\LEVODOPA [Concomitant]
     Active Substance: CARBIDOPA\LEVODOPA
     Dosage: 0.25 MILLIGRAM, 6X/DAY

REACTIONS (12)
  - Scoliosis [Unknown]
  - Scoliosis surgery [Unknown]
  - Hepatic steatosis [Unknown]
  - Haemorrhage [Unknown]
  - Gait disturbance [Unknown]
  - Urinary tract infection [Unknown]
  - Blood alkaline phosphatase increased [Unknown]
  - Wheelchair user [Unknown]
  - Pain [Recovered/Resolved]
  - Transfusion [Unknown]
  - Lipoprotein abnormal [Unknown]
  - Wrong technique in product usage process [Unknown]
